FAERS Safety Report 7753952-6 (Version None)
Quarter: 2011Q3

REPORT INFORMATION
  Report Type: 
  Country: None (occurrence: None)
  Receive Date: 20110915
  Receipt Date: 20110907
  Transmission Date: 20111222
  Serious: Yes (Hospitalization)
  Sender: FDA-Public Use
  Company Number: US-SANOFI-AVENTIS-2011SA059420

PATIENT

DRUGS (3)
  1. ASPIRIN [Suspect]
     Route: 065
  2. DABIGATRAN [Suspect]
     Route: 065
  3. PLAVIX [Suspect]
     Route: 065

REACTIONS (1)
  - PERICARDIAL EFFUSION [None]
